FAERS Safety Report 16440945 (Version 2)
Quarter: 2020Q4

REPORT INFORMATION
  Report Type: Spontaneous
  Country: CH (occurrence: CH)
  Receive Date: 20190617
  Receipt Date: 20201007
  Transmission Date: 20210113
  Serious: Yes (Other)
  Sender: FDA-Public Use
  Company Number: CH-PFIZER INC-2019251030

PATIENT
  Age: 71 Year
  Sex: Male

DRUGS (34)
  1. TIENAM [Suspect]
     Active Substance: CILASTATIN SODIUM\IMIPENEM
     Dosage: 500 MG, 4X/DAY
     Route: 042
     Dates: start: 20190518, end: 20190520
  2. CALCIPARINE [Suspect]
     Active Substance: HEPARIN CALCIUM
     Dosage: 5000 IU, UNK
     Dates: start: 20190522
  3. CO-AMOXI [Concomitant]
     Active Substance: AMOXICILLIN\CLAVULANATE POTASSIUM
     Dosage: UNK
     Dates: start: 20190510, end: 20190516
  4. CEFUROXIME. [Suspect]
     Active Substance: CEFUROXIME
     Dosage: 750 MG, 3X/DAY
     Route: 042
     Dates: start: 20190515, end: 20190518
  5. LASIX [Suspect]
     Active Substance: FUROSEMIDE
     Dosage: 20 MG, UNK
     Dates: start: 20190530, end: 20190530
  6. VANCOMYCINE [VANCOMYCIN HYDROCHLORIDE] [Concomitant]
     Active Substance: VANCOMYCIN HYDROCHLORIDE
     Dosage: UNK
     Dates: start: 20190510, end: 20190512
  7. DILZEM [Concomitant]
     Active Substance: DILTIAZEM
     Dosage: UNK
  8. LAXOBERON [Concomitant]
     Active Substance: SODIUM PICOSULFATE
     Dosage: UNK, AS NEEDED
     Dates: start: 20190515
  9. CLYSSIE [Concomitant]
     Dosage: UNK, AS NEEDED
     Dates: start: 20190517
  10. ALBUMIN [Concomitant]
     Active Substance: ALBUMIN HUMAN
     Dosage: UNK
     Dates: start: 20190521
  11. ELOCOM [Concomitant]
     Active Substance: MOMETASONE FUROATE
     Dosage: UNK
     Dates: start: 20190530, end: 20190603
  12. TEMESTA EXPIDET [Concomitant]
     Active Substance: LORAZEPAM
     Dosage: UNK, AS NEEDED
     Dates: start: 20190527
  13. VALTREX [Suspect]
     Active Substance: VALACYCLOVIR HYDROCHLORIDE
     Dosage: 1000 MG, 2X/DAY
     Dates: start: 20190522, end: 20190524
  14. CLEXANE [Suspect]
     Active Substance: ENOXAPARIN SODIUM
     Dosage: 80 MG, 2X/DAY
     Dates: start: 20190509, end: 20190512
  15. ALBUMIN [Concomitant]
     Active Substance: ALBUMIN HUMAN
     Dosage: UNK
     Dates: start: 20190512, end: 20190512
  16. PEVARYL [ECONAZOLE NITRATE] [Concomitant]
     Dosage: UNK
     Dates: start: 20190506
  17. SEVREDOL [Concomitant]
     Active Substance: MORPHINE
     Dosage: UNK
     Dates: start: 20190509, end: 20190515
  18. NEPHROTRANS [Suspect]
     Active Substance: SODIUM BICARBONATE
     Dosage: 1 G, 3X/DAY
     Dates: start: 20190528, end: 20190530
  19. NOVORAPID [Suspect]
     Active Substance: INSULIN ASPART
     Dosage: UNK, AS NEEDED
  20. NEXIUM [Concomitant]
     Active Substance: ESOMEPRAZOLE MAGNESIUM
     Dosage: UNK
     Dates: start: 20190509, end: 20190515
  21. CETIRIZINE [Concomitant]
     Active Substance: CETIRIZINE HYDROCHLORIDE
     Dosage: UNK, AS NEEDED
  22. CEFUROXIME. [Suspect]
     Active Substance: CEFUROXIME
     Dosage: 750 MG, 3X/DAY
     Route: 042
     Dates: start: 20190520, end: 20190531
  23. ALBUMIN [Concomitant]
     Active Substance: ALBUMIN HUMAN
     Dosage: UNK
     Dates: start: 20190517, end: 20190517
  24. VANCOMYCINE [VANCOMYCIN HYDROCHLORIDE] [Concomitant]
     Active Substance: VANCOMYCIN HYDROCHLORIDE
     Dosage: UNK
     Dates: start: 20190517, end: 20190521
  25. SODIUM CHLORIDE. [Concomitant]
     Active Substance: SODIUM CHLORIDE
     Dosage: UNK
  26. PURSANA [Concomitant]
     Active Substance: FIG FRUIT OIL\SORBITOL
     Dosage: UNK, AS NEEDED
     Dates: start: 20190521
  27. ECALTA [Suspect]
     Active Substance: ANIDULAFUNGIN
     Dosage: 100 MG, 1X/DAY
     Route: 042
     Dates: start: 20190520, end: 20190531
  28. BELOC ZOK [Suspect]
     Active Substance: METOPROLOL SUCCINATE
     Dosage: 25 MG, 1X/DAY
     Route: 048
     Dates: start: 20190515
  29. ONDANSETRON [Suspect]
     Active Substance: ONDANSETRON
     Dosage: UNK, AS NEEDED
     Dates: start: 20190505
  30. SEVREDOL [Concomitant]
     Active Substance: MORPHINE
     Dosage: UNK
     Dates: start: 20190515, end: 20190523
  31. CLEXANE [Suspect]
     Active Substance: ENOXAPARIN SODIUM
     Dosage: 40 MG, 1X/DAY
     Dates: start: 20190515, end: 20190517
  32. OCTREOTIDE. [Suspect]
     Active Substance: OCTREOTIDE
     Dosage: 0.3 MG/MIN, 3XDAY
     Route: 042
     Dates: start: 20190518
  33. LASIX [Suspect]
     Active Substance: FUROSEMIDE
     Dosage: 20 MG, UNK
     Dates: start: 20190525, end: 20190525
  34. NEXIUM [Concomitant]
     Active Substance: ESOMEPRAZOLE MAGNESIUM
     Dosage: UNK
     Dates: start: 20190502, end: 20190507

REACTIONS (5)
  - Rash maculo-papular [Recovered/Resolved]
  - Pancreatitis [Unknown]
  - Pyrexia [Unknown]
  - Eosinophilia [Recovered/Resolved]
  - Systemic inflammatory response syndrome [Unknown]

NARRATIVE: CASE EVENT DATE: 20190526
